FAERS Safety Report 8829878 (Version 1)
Quarter: 2012Q4

REPORT INFORMATION
  Report Type: 
  Country: US (occurrence: US)
  Receive Date: 20121008
  Receipt Date: 20121008
  Transmission Date: 20130627
  Serious: Yes (Other)
  Sender: FDA-Public Use
  Company Number: US-PFIZER INC-2012242983

PATIENT
  Age: 69 Year
  Sex: Female

DRUGS (13)
  1. MIRTAZAPINE [Suspect]
     Indication: DEPRESSION
     Dosage: 15 mg, UNK
  2. MIRTAZAPINE [Suspect]
     Dosage: 30 mg, nightly
  3. QUETIAPINE FUMARATE [Suspect]
     Indication: DEPRESSION
     Dosage: 100 mg, at bedtime
  4. QUETIAPINE FUMARATE [Suspect]
     Dosage: 100 mg, nightly
  5. ALPRAZOLAM [Suspect]
     Dosage: 0.5 mg, 3x/day
  6. VENLAFAXINE HYDROCHLORIDE [Suspect]
     Dosage: UNK
  7. VENLAFAXINE HYDROCHLORIDE [Suspect]
     Dosage: 225 mg, daily
  8. BUPROPION [Suspect]
     Indication: DEPRESSION
     Dosage: 100 mg, UNK
     Route: 048
  9. BUPROPION [Suspect]
     Dosage: 100 mg, 3x/day
  10. TEMAZEPAM [Suspect]
     Indication: DEPRESSION
     Dosage: 30 mg, at bedtime as needed
  11. ASPIRIN [Concomitant]
     Indication: CARDIAC DISORDER
     Dosage: UNK
  12. CLOPIDOGREL [Concomitant]
     Indication: CARDIAC DISORDER
     Dosage: UNK
  13. ATENOLOL [Concomitant]
     Indication: CARDIAC DISORDER
     Dosage: UNK

REACTIONS (2)
  - Depression [Recovering/Resolving]
  - Drug ineffective [Unknown]
